FAERS Safety Report 18163382 (Version 2)
Quarter: 2020Q3

REPORT INFORMATION
  Report Type: Spontaneous
  Country: US (occurrence: US)
  Receive Date: 20200818
  Receipt Date: 20200821
  Transmission Date: 20201103
  Serious: No
  Sender: FDA-Public Use
  Company Number: US-SA-2020SA214198

PATIENT

DRUGS (1)
  1. ENOXAPARIN SODIUM ? WINTHROP [Suspect]
     Active Substance: ENOXAPARIN SODIUM
     Indication: PULMONARY THROMBOSIS
     Dosage: 150 MG, BID
     Route: 065
     Dates: start: 202005

REACTIONS (5)
  - Injection site haematoma [Unknown]
  - Injection site mass [Unknown]
  - Dysphonia [Unknown]
  - Product use complaint [Unknown]
  - Injection site pain [Unknown]

NARRATIVE: CASE EVENT DATE: 20200814
